FAERS Safety Report 21332030 (Version 1)
Quarter: 2022Q3

REPORT INFORMATION
  Report Type: Spontaneous
  Country: US (occurrence: None)
  Receive Date: 20220913
  Receipt Date: 20220913
  Transmission Date: 20221027
  Serious: No
  Sender: FDA-Public Use
  Company Number: None

PATIENT
  Age: 70 Year
  Sex: Male

DRUGS (1)
  1. ENBREL [Suspect]
     Active Substance: ETANERCEPT
     Indication: Psoriatic arthropathy
     Dosage: FREQUENCY : WEEKLY;?
     Route: 058
     Dates: start: 202105

REACTIONS (6)
  - Malaise [None]
  - Cellulitis [None]
  - White blood cell count increased [None]
  - Glucose tolerance impaired [None]
  - Chronic kidney disease [None]
  - Therapy interrupted [None]
